FAERS Safety Report 14373159 (Version 1)
Quarter: 2018Q1

REPORT INFORMATION
  Report Type: Spontaneous
  Country: US (occurrence: US)
  Receive Date: 20180110
  Receipt Date: 20180110
  Transmission Date: 20180509
  Serious: Yes (Hospitalization, Other)
  Sender: FDA-Public Use
  Company Number: US-SHIRE-US201735810

PATIENT
  Age: 31 Year
  Sex: Female

DRUGS (4)
  1. HUMAN NORMAL IMMUNOGLOBULIN [Suspect]
     Active Substance: HUMAN IMMUNOGLOBULIN G
     Indication: NEONATAL ALLOIMMUNE THROMBOCYTOPENIA
     Dosage: 2 G/KG AT 20 WGA
     Route: 042
  2. HUMAN NORMAL IMMUNOGLOBULIN [Suspect]
     Active Substance: HUMAN IMMUNOGLOBULIN G
     Dosage: 1 G/KG, 1X/WEEK
     Route: 042
  3. PREDNISONE. [Suspect]
     Active Substance: PREDNISONE
     Indication: NEONATAL ALLOIMMUNE THROMBOCYTOPENIA
     Dosage: 0.5 MG/KG
     Route: 048
  4. ENOXAPARIN [Suspect]
     Active Substance: ENOXAPARIN
     Indication: THROMBOSIS PROPHYLAXIS
     Dosage: 40 MG, 1X/DAY:QD
     Route: 065

REACTIONS (5)
  - Fatigue [Unknown]
  - Exposure during pregnancy [Unknown]
  - Pyrexia [Unknown]
  - Chills [Unknown]
  - Pancytopenia [Unknown]
